FAERS Safety Report 7917629-6 (Version None)
Quarter: 2011Q4

REPORT INFORMATION
  Report Type: 
  Country: None (occurrence: None)
  Receive Date: 20111116
  Receipt Date: 20111104
  Transmission Date: 20120403
  Serious: Yes (Life-Threatening, Other)
  Sender: FDA-Public Use
  Company Number: GB-ELI_LILLY_AND_COMPANY-GB201111001392

PATIENT

DRUGS (4)
  1. FLUOXETINE HCL [Suspect]
     Dosage: 40 MG, QD
     Route: 064
  2. SERTRALINE HYDROCHLORIDE [Concomitant]
     Dosage: 50 MG, QD
     Route: 064
  3. FLUOXETINE HCL [Suspect]
     Dosage: 40 MG, QD
     Route: 064
  4. SERTRALINE HYDROCHLORIDE [Concomitant]
     Dosage: 50 MG, QD
     Route: 064

REACTIONS (2)
  - PERSISTENT FOETAL CIRCULATION [None]
  - FOETAL EXPOSURE DURING PREGNANCY [None]
